FAERS Safety Report 15235481 (Version 1)
Quarter: 2018Q3

REPORT INFORMATION
  Report Type: Report from Study
  Country: DE (occurrence: DE)
  Receive Date: 20180803
  Receipt Date: 20180803
  Transmission Date: 20181010
  Serious: Yes (Hospitalization, Other)
  Sender: FDA-Public Use
  Company Number: DE-ACCORD-070373

PATIENT
  Sex: Female

DRUGS (10)
  1. PREDNISOLONE. [Suspect]
     Active Substance: PREDNISOLONE
     Indication: RHEUMATOID ARTHRITIS
     Dates: start: 1999
  2. LISINOPRIL. [Concomitant]
     Active Substance: LISINOPRIL
  3. NOVODIGAL [Concomitant]
  4. RITUXIMAB. [Suspect]
     Active Substance: RITUXIMAB
     Indication: RHEUMATOID ARTHRITIS
     Dosage: 1400 MG FROM 23?JAN?2017 FOR 3 WEEKS
     Route: 058
     Dates: start: 20090311
  5. JODID [Concomitant]
     Active Substance: IODINE
  6. MARCUMAR [Concomitant]
     Active Substance: PHENPROCOUMON
  7. BONVIVA [Concomitant]
     Active Substance: IBANDRONATE SODIUM
  8. METHOTREXATE. [Suspect]
     Active Substance: METHOTREXATE
     Indication: RHEUMATOID ARTHRITIS
     Route: 048
     Dates: start: 200903
  9. SOTALEX [Concomitant]
     Active Substance: SOTALOL
  10. BENDAMUSTINE/BENDAMUSTINE HYDROCHLORIDE [Concomitant]

REACTIONS (3)
  - Non-Hodgkin^s lymphoma recurrent [Unknown]
  - Respiratory tract infection [Recovered/Resolved]
  - Non-Hodgkin^s lymphoma [Not Recovered/Not Resolved]

NARRATIVE: CASE EVENT DATE: 20110220
